FAERS Safety Report 22180546 (Version 1)
Quarter: 2023Q2

REPORT INFORMATION
  Report Type: Spontaneous
  Country: HU (occurrence: HU)
  Receive Date: 20230406
  Receipt Date: 20230406
  Transmission Date: 20230722
  Serious: Yes (Death, Hospitalization, Other)
  Sender: FDA-Public Use
  Company Number: HU-002147023-NVSC2023HU069169

PATIENT
  Age: 68 Year
  Sex: Male

DRUGS (9)
  1. RITUXIMAB [Suspect]
     Active Substance: RITUXIMAB
     Indication: Diffuse large B-cell lymphoma
     Dosage: UNK
     Route: 065
  2. RUXOLITINIB [Suspect]
     Active Substance: RUXOLITINIB
     Indication: Primary myelofibrosis
     Dosage: 10 MG, QD (2 X 10 MG)
     Route: 065
     Dates: start: 201802
  3. PREDNISOLONE [Concomitant]
     Active Substance: PREDNISOLONE
     Indication: Product used for unknown indication
     Dosage: UNK
  4. CYCLOPHOSPHAMIDE [Concomitant]
     Active Substance: CYCLOPHOSPHAMIDE
     Indication: Diffuse large B-cell lymphoma
     Dosage: UNK
  5. VALSARTAN [Concomitant]
     Active Substance: VALSARTAN
     Indication: Product used for unknown indication
     Dosage: UNK
  6. FLUDEOXYGLUCOSE F-18 [Concomitant]
     Active Substance: FLUDEOXYGLUCOSE F-18
     Indication: Product used for unknown indication
     Dosage: UNK
  7. VINCRISTINE [Concomitant]
     Active Substance: VINCRISTINE
     Indication: Diffuse large B-cell lymphoma
     Dosage: UNK
  8. ALLOPURINOL [Concomitant]
     Active Substance: ALLOPURINOL
     Indication: Product used for unknown indication
     Dosage: UNK
  9. ASPIRIN [Concomitant]
     Active Substance: ASPIRIN
     Indication: Product used for unknown indication
     Dosage: UNK

REACTIONS (17)
  - Gastrointestinal haemorrhage [Unknown]
  - Abdominal discomfort [Unknown]
  - Weight decreased [Unknown]
  - General physical health deterioration [Unknown]
  - Asthenia [Unknown]
  - Somnolence [Unknown]
  - Candida infection [Unknown]
  - Pancytopenia [Unknown]
  - Metastases to liver [Unknown]
  - Febrile neutropenia [Unknown]
  - Second primary malignancy [Unknown]
  - Death [Fatal]
  - Ascites [Unknown]
  - Cytomegalovirus infection reactivation [Unknown]
  - Haematochezia [Unknown]
  - Diffuse large B-cell lymphoma [Unknown]
  - Body temperature increased [Unknown]

NARRATIVE: CASE EVENT DATE: 20220101
